FAERS Safety Report 19835286 (Version 1)
Quarter: 2021Q3

REPORT INFORMATION
  Report Type: Spontaneous
  Country: US (occurrence: US)
  Receive Date: 20210915
  Receipt Date: 20210915
  Transmission Date: 20211014
  Serious: No
  Sender: FDA-Public Use
  Company Number: US-PFIZER INC-2021402516

PATIENT
  Age: 74 Year
  Sex: Female
  Weight: 61.23 kg

DRUGS (2)
  1. IBRANCE [Suspect]
     Active Substance: PALBOCICLIB
     Indication: BREAST CANCER FEMALE
     Dosage: 75 MG, CYCLIC(75 MG ONCE A DAY FOR 3 WEEKS AND THEN OFF FOR A WEEK)
     Dates: start: 201602
  2. LETROZOLE. [Concomitant]
     Active Substance: LETROZOLE
     Indication: BLOOD OESTROGEN DECREASED
     Dosage: 2.5 MG (ONCE A DAY)

REACTIONS (1)
  - Alopecia [Not Recovered/Not Resolved]
